FAERS Safety Report 10718131 (Version 9)
Quarter: 2018Q1

REPORT INFORMATION
  Report Type: Report from Study
  Country: GB (occurrence: GB)
  Receive Date: 20150117
  Receipt Date: 20180215
  Transmission Date: 20180508
  Serious: Yes (Other)
  Sender: FDA-Public Use
  Company Number: PHHY2015GB004365

PATIENT
  Age: 56 Year
  Sex: Female

DRUGS (1)
  1. GILENYA [Suspect]
     Active Substance: FINGOLIMOD HYDROCHLORIDE
     Indication: MULTIPLE SCLEROSIS
     Dosage: 0.5 MG, QD
     Route: 048
     Dates: start: 20140722

REACTIONS (10)
  - Oropharyngeal pain [Unknown]
  - Syncope [Unknown]
  - Condition aggravated [Unknown]
  - Sinusitis [Unknown]
  - White blood cell count decreased [Unknown]
  - Neuralgia [Unknown]
  - Epilepsy [Recovered/Resolved]
  - Blood pressure increased [Unknown]
  - Pain [Unknown]
  - Somnolence [Unknown]

NARRATIVE: CASE EVENT DATE: 2014
